FAERS Safety Report 4984305-1 (Version None)
Quarter: 2006Q2

REPORT INFORMATION
  Report Type: 
  Country: None (occurrence: None)
  Receive Date: 20060420
  Receipt Date: 20060407
  Transmission Date: 20061013
  Serious: Yes (Other)
  Sender: FDA-Public Use
  Company Number: 2005172539

PATIENT
  Age: 72 Year
  Sex: Female
  Weight: 60 kg

DRUGS (3)
  1. CABERGOLINE [Suspect]
     Indication: PARKINSON'S DISEASE
     Dosage: 2 MG (EVERY DAY), ORAL
     Route: 048
     Dates: start: 20050224, end: 20050929
  2. LEVODOPA (LEVODOPA) [Concomitant]
  3. RISPERIDONE [Concomitant]

REACTIONS (3)
  - HALLUCINATION [None]
  - IDEAS OF REFERENCE [None]
  - MENTAL IMPAIRMENT [None]
